FAERS Safety Report 5805360-2 (Version None)
Quarter: 2008Q3

REPORT INFORMATION
  Report Type: 
  Country: None (occurrence: None)
  Receive Date: 20080702
  Receipt Date: 20070810
  Transmission Date: 20090109
  Serious: Yes (Other)
  Sender: FDA-Public Use
  Company Number: HQWYE538314AUG07

PATIENT
  Age: 44 Year
  Sex: Female

DRUGS (2)
  1. ADVIL [Suspect]
     Indication: ANALGESIA
     Dosage: 2 TABLETS AS NEEDED, ORAL
     Route: 048
  2. SYNTHROID [Concomitant]

REACTIONS (1)
  - BLOOD GLUCOSE INCREASED [None]
